FAERS Safety Report 7475739-4 (Version None)
Quarter: 2011Q2

REPORT INFORMATION
  Report Type: 
  Country: None (occurrence: None)
  Receive Date: 20110510
  Receipt Date: 20110510
  Transmission Date: 20111010
  Serious: No
  Sender: FDA-Public Use
  Company Number: None

PATIENT
  Sex: Male
  Weight: 90.7194 kg

DRUGS (1)
  1. MESTINON [Suspect]
     Indication: PREGNANCY
     Dosage: ONE TABLET DAILY PO
     Route: 048
     Dates: start: 20110212, end: 20110320

REACTIONS (11)
  - VISION BLURRED [None]
  - DIPLOPIA [None]
  - LACRIMATION INCREASED [None]
  - DYSPNOEA [None]
  - MASTICATION DISORDER [None]
  - DYSARTHRIA [None]
  - DIARRHOEA [None]
  - DYSPHAGIA [None]
  - HYPOAESTHESIA [None]
  - ASTHENIA [None]
  - SALIVARY GLAND DISORDER [None]
